FAERS Safety Report 10977404 (Version 1)
Quarter: 2015Q2

REPORT INFORMATION
  Report Type: Report from Study
  Country: DE (occurrence: DE)
  Receive Date: 20150402
  Receipt Date: 20150402
  Transmission Date: 20150821
  Serious: Yes (Hospitalization)
  Sender: FDA-Public Use
  Company Number: DE-BIOGENIDEC-2015BI040781

PATIENT
  Age: 31 Year
  Sex: Female

DRUGS (2)
  1. NOVAMINSULFON [Concomitant]
     Active Substance: METAMIZOLE
     Indication: BACK PAIN
  2. TECFIDERA [Suspect]
     Active Substance: DIMETHYL FUMARATE
     Indication: MULTIPLE SCLEROSIS
     Route: 048
     Dates: start: 20140401

REACTIONS (1)
  - Depressed mood [Not Recovered/Not Resolved]

NARRATIVE: CASE EVENT DATE: 20141201
